FAERS Safety Report 11392467 (Version 3)
Quarter: 2016Q4

REPORT INFORMATION
  Report Type: Report from Study
  Country: FR (occurrence: FR)
  Receive Date: 20150818
  Receipt Date: 20161102
  Transmission Date: 20170206
  Serious: Yes (Hospitalization)
  Sender: FDA-Public Use
  Company Number: PHHY2013FR054734

PATIENT
  Age: 56 Year
  Sex: Female
  Weight: 66 kg

DRUGS (27)
  1. CERTICAN [Suspect]
     Active Substance: EVEROLIMUS
     Indication: PROPHYLAXIS AGAINST TRANSPLANT REJECTION
  2. MYCOPHENOLIC ACID. [Suspect]
     Active Substance: MYCOPHENOLIC ACID
     Indication: RENAL TRANSPLANT
     Dosage: 720 MG, BID
     Route: 048
     Dates: start: 20110416
  3. CORTANCYL [Suspect]
     Active Substance: PREDNISONE
     Indication: PROPHYLAXIS AGAINST TRANSPLANT REJECTION
     Dosage: 7.5 MG, QD
     Route: 048
     Dates: start: 201104
  4. AUGMENTIN [Concomitant]
     Active Substance: AMOXICILLIN\CLAVULANATE POTASSIUM
     Indication: INFECTION
     Dosage: 1 G, TID
     Route: 065
     Dates: start: 20140604, end: 20140622
  5. NOVORAPID [Concomitant]
     Active Substance: INSULIN ASPART
     Indication: PRODUCT USED FOR UNKNOWN INDICATION
     Route: 065
  6. CERTICAN [Suspect]
     Active Substance: EVEROLIMUS
     Indication: RENAL TRANSPLANT
     Dosage: 1.25 MG, BID
     Route: 048
     Dates: start: 20120831
  7. NEORAL [Suspect]
     Active Substance: CYCLOSPORINE
     Indication: RENAL TRANSPLANT
     Dosage: UNK
     Route: 048
     Dates: start: 201104, end: 20121017
  8. INDOCOLLYRE [Concomitant]
     Active Substance: INDOMETHACIN
     Indication: EYE OPERATION
     Dosage: 1 DRP, TID
     Route: 065
     Dates: start: 20130205, end: 20130306
  9. INDOCOLLYRE [Concomitant]
     Active Substance: INDOMETHACIN
     Dosage: 1 DRP, TID
     Route: 065
     Dates: start: 20130402, end: 20130502
  10. CHIBRO CADRON [Concomitant]
     Active Substance: DEXAMETHASONE SODIUM PHOSPHATE\NEOMYCIN SULFATE
     Indication: EYE OPERATION
     Dosage: 1 DF, 6QD
     Route: 065
     Dates: start: 20130205, end: 20130306
  11. TEMERIT [Concomitant]
     Active Substance: NEBIVOLOL
     Indication: PRODUCT USED FOR UNKNOWN INDICATION
     Route: 065
  12. NEORAL [Suspect]
     Active Substance: CYCLOSPORINE
     Indication: IMMUNOSUPPRESSANT DRUG THERAPY
     Dosage: UNK
     Route: 048
     Dates: start: 20141021, end: 20141212
  13. CHIBRO CADRON [Concomitant]
     Active Substance: DEXAMETHASONE SODIUM PHOSPHATE\NEOMYCIN SULFATE
     Dosage: 1 DRP, QID
     Route: 065
     Dates: start: 20130402, end: 20130502
  14. ROCEPHINE [Concomitant]
     Active Substance: CEFTRIAXONE SODIUM
     Dosage: 1 G, UNK
     Route: 065
     Dates: start: 20140204, end: 20140205
  15. CLAMOXYL//AMOXICILLIN [Concomitant]
     Active Substance: AMOXICILLIN
     Indication: PYELONEPHRITIS
     Dosage: 1 G, TID
     Route: 048
     Dates: start: 20121122, end: 20121206
  16. INEXIUM [Concomitant]
     Active Substance: ESOMEPRAZOLE
     Indication: PRODUCT USED FOR UNKNOWN INDICATION
     Route: 065
  17. HYPERIUM [Concomitant]
     Active Substance: RILMENIDINE PHOSPHATE
     Indication: PRODUCT USED FOR UNKNOWN INDICATION
     Route: 065
  18. MYCOPHENOLIC ACID. [Suspect]
     Active Substance: MYCOPHENOLIC ACID
     Indication: PROPHYLAXIS AGAINST TRANSPLANT REJECTION
     Dosage: 720 MG, BID
     Route: 048
     Dates: start: 20110911
  19. CLAMOXYL//AMOXICILLIN [Concomitant]
     Active Substance: AMOXICILLIN
     Dosage: 1 G, TID
     Route: 065
     Dates: start: 20140209, end: 20140219
  20. EUPRESSYL [Concomitant]
     Active Substance: URAPIDIL
     Indication: PRODUCT USED FOR UNKNOWN INDICATION
     Dosage: 60 MG, UNK
     Route: 065
  21. GENTAMYCINE [Concomitant]
     Active Substance: GENTAMICIN
     Indication: PYELONEPHRITIS
     Dosage: 320 MG, UNK
     Route: 065
     Dates: start: 20120515, end: 20120530
  22. TIENAM [Concomitant]
     Active Substance: CILASTATIN SODIUM\IMIPENEM
     Indication: INFECTION
     Dosage: 1 G, TID
     Route: 065
     Dates: start: 20140303, end: 20140313
  23. OFLOCET [Concomitant]
     Active Substance: OFLOXACIN
     Indication: INFECTION
     Dosage: 200 MG, BID
     Route: 065
     Dates: start: 20140404, end: 20140417
  24. ROCEPHINE [Concomitant]
     Active Substance: CEFTRIAXONE SODIUM
     Indication: PYELONEPHRITIS
     Dosage: 1 G, UNK
     Route: 065
     Dates: start: 20120515, end: 20120530
  25. ROCEPHINE [Concomitant]
     Active Substance: CEFTRIAXONE SODIUM
     Dosage: 1 G, UNK
     Route: 042
     Dates: start: 20121119, end: 20121122
  26. LASILIX [Concomitant]
     Active Substance: FUROSEMIDE
     Indication: PRODUCT USED FOR UNKNOWN INDICATION
     Route: 065
  27. LANTUS [Concomitant]
     Active Substance: INSULIN GLARGINE
     Indication: PRODUCT USED FOR UNKNOWN INDICATION
     Route: 065

REACTIONS (12)
  - Papilloedema [Recovered/Resolved]
  - Cataract [Recovered/Resolved]
  - Pyrexia [Recovered/Resolved]
  - Escherichia pyelonephritis [Recovered/Resolved]
  - Escherichia pyelonephritis [Recovered/Resolved]
  - Pneumonia klebsiella [Recovered/Resolved]
  - Bacterial pyelonephritis [Recovered/Resolved]
  - Pain [Recovered/Resolved]
  - Cataract [Recovered/Resolved]
  - Acute kidney injury [Recovered/Resolved]
  - Escherichia pyelonephritis [Recovered/Resolved]
  - Escherichia pyelonephritis [Recovered/Resolved]

NARRATIVE: CASE EVENT DATE: 20120608
